FAERS Safety Report 20244471 (Version 1)
Quarter: 2021Q4

REPORT INFORMATION
  Report Type: Spontaneous
  Country: US (occurrence: US)
  Receive Date: 20211229
  Receipt Date: 20211229
  Transmission Date: 20220303
  Serious: No
  Sender: FDA-Public Use
  Company Number: US-COOPERSURGICAL, INC.-US-2021CPS003451

PATIENT

DRUGS (1)
  1. PARAGARD T 380A [Suspect]
     Active Substance: COPPER
     Indication: Product used for unknown indication
     Dosage: UNK
     Route: 015
     Dates: start: 201010, end: 20210915

REACTIONS (3)
  - Device issue [Recovered/Resolved]
  - Device material issue [Not Recovered/Not Resolved]
  - Device use issue [Unknown]

NARRATIVE: CASE EVENT DATE: 20210915
